FAERS Safety Report 6469244-1 (Version None)
Quarter: 2009Q4

REPORT INFORMATION
  Report Type: 
  Country: None (occurrence: None)
  Receive Date: 20091203
  Receipt Date: 20071107
  Transmission Date: 20100525
  Serious: Yes (Hospitalization, Other)
  Sender: FDA-Public Use
  Company Number: US-ELI_LILLY_AND_COMPANY-US200708005082

PATIENT
  Sex: Female

DRUGS (7)
  1. FORTEO [Suspect]
     Indication: OSTEOPOROSIS
     Dates: start: 20070727
  2. FORTEO [Suspect]
     Dosage: UNK, UNK
  3. ADVAIR DISKUS 100/50 [Concomitant]
     Indication: EMPHYSEMA
     Dosage: UNK, UNK
     Dates: end: 20070101
  4. SPIRIVA [Concomitant]
     Indication: EMPHYSEMA
  5. OXYGEN [Concomitant]
     Dosage: UNKNOWN
     Dates: start: 20030101
  6. OXYGEN [Concomitant]
     Dosage: 2 LITER, CONTINUOUSLY
  7. LEVOXYL [Concomitant]

REACTIONS (4)
  - CHRONIC OBSTRUCTIVE PULMONARY DISEASE [None]
  - DYSPNOEA [None]
  - LOBAR PNEUMONIA [None]
  - STAPHYLOCOCCAL INFECTION [None]
